FAERS Safety Report 25185423 (Version 4)
Quarter: 2025Q2

REPORT INFORMATION
  Report Type: Spontaneous
  Country: US (occurrence: US)
  Receive Date: 20250410
  Receipt Date: 20250505
  Transmission Date: 20250716
  Serious: No
  Sender: BIOGEN
  Company Number: US-BIOGEN-2024BI01292715

PATIENT
  Sex: Female

DRUGS (1)
  1. VUMERITY [Suspect]
     Active Substance: DIROXIMEL FUMARATE
     Indication: Multiple sclerosis
     Dosage: START DATE ALSO REPORTED 06-NOV-2024
     Route: 050
     Dates: start: 20241027, end: 20250430

REACTIONS (12)
  - Dizziness [Not Recovered/Not Resolved]
  - Urinary tract infection [Not Recovered/Not Resolved]
  - Madarosis [Not Recovered/Not Resolved]
  - Fungal infection [Unknown]
  - Visual impairment [Unknown]
  - Hair texture abnormal [Unknown]
  - Full blood count abnormal [Unknown]
  - Blood creatinine increased [Unknown]
  - Depression [Recovered/Resolved]
  - Alopecia [Not Recovered/Not Resolved]
  - Dyspepsia [Unknown]
  - Nausea [Unknown]

NARRATIVE: CASE EVENT DATE: 20240101
